FAERS Safety Report 7627507-8 (Version None)
Quarter: 2011Q3

REPORT INFORMATION
  Report Type: 
  Country: None (occurrence: None)
  Receive Date: 20110721
  Receipt Date: 20110713
  Transmission Date: 20111222
  Serious: Yes (Other)
  Sender: FDA-Public Use
  Company Number: CA-PFIZER INC-2011133770

PATIENT
  Age: 68 Year
  Sex: Female

DRUGS (4)
  1. VASOTEC [Concomitant]
     Indication: HYPERTENSION
     Dosage: 2.5 MG, 1X/DAY
  2. XALATAN [Suspect]
     Indication: GLAUCOMA
     Dosage: 1 GTT IN RIGHT EYE, 1X/DAY AT NIGHT
     Route: 047
     Dates: start: 20101201
  3. VASOTEC [Concomitant]
     Indication: HYPERTHYROIDISM
  4. FOSAMAX [Concomitant]
     Indication: BONE DISORDER
     Dosage: UNK

REACTIONS (5)
  - INTRAOCULAR PRESSURE INCREASED [None]
  - CATARACT [None]
  - BLINDNESS UNILATERAL [None]
  - DRUG INEFFECTIVE [None]
  - EYE EXCISION [None]
